FAERS Safety Report 8119114-8 (Version None)
Quarter: 2012Q1

REPORT INFORMATION
  Report Type: 
  Country: None (occurrence: None)
  Receive Date: 20120207
  Receipt Date: 20111214
  Transmission Date: 20120608
  Serious: Yes (Other)
  Sender: FDA-Public Use
  Company Number: NZ-ABBOTT-11P-118-0852165-00

PATIENT
  Sex: Female

DRUGS (1)
  1. LEUPROLIDE ACETATE [Suspect]
     Indication: PRECOCIOUS PUBERTY
     Dates: start: 20090101

REACTIONS (4)
  - OVARIAN CYST [None]
  - HEPATITIS [None]
  - PRECOCIOUS PUBERTY [None]
  - OFF LABEL USE [None]
